FAERS Safety Report 24654078 (Version 1)
Quarter: 2024Q4

REPORT INFORMATION
  Report Type: Spontaneous
  Country: KW (occurrence: KW)
  Receive Date: 20241122
  Receipt Date: 20241122
  Transmission Date: 20250115
  Serious: Yes (Other)
  Sender: ELI LILLY AND COMPANY
  Company Number: KW-ELI_LILLY_AND_COMPANY-KW202411009290

PATIENT
  Age: 25 Year
  Sex: Female

DRUGS (1)
  1. MOUNJARO [Suspect]
     Active Substance: TIRZEPATIDE
     Indication: Product used for unknown indication
     Dosage: UNK UNK, UNKNOWN
     Route: 065

REACTIONS (3)
  - Weight decreased [Recovered/Resolved]
  - Hepatitis fulminant [Recovered/Resolved]
  - Hepatic steatosis [Recovered/Resolved]
